FAERS Safety Report 15785158 (Version 3)
Quarter: 2019Q3

REPORT INFORMATION
  Report Type: Spontaneous
  Country: US (occurrence: US)
  Receive Date: 20190103
  Receipt Date: 20190904
  Transmission Date: 20191004
  Serious: Yes (Other)
  Sender: FDA-Public Use
  Company Number: US-PFIZER INC-2019001321

PATIENT
  Age: 56 Year
  Sex: Female

DRUGS (1)
  1. XELJANZ [Suspect]
     Active Substance: TOFACITINIB CITRATE
     Indication: RHEUMATOID ARTHRITIS
     Dosage: 5 MG, TWICE DAILY
     Route: 048
     Dates: start: 201811

REACTIONS (7)
  - Blood pressure increased [Unknown]
  - Dizziness [Unknown]
  - Stress at work [Unknown]
  - Fatigue [Recovering/Resolving]
  - Headache [Unknown]
  - Abdominal discomfort [Unknown]
  - Pneumonia [Unknown]

NARRATIVE: CASE EVENT DATE: 20190822
